FAERS Safety Report 6523500-7 (Version None)
Quarter: 2009Q4

REPORT INFORMATION
  Report Type: 
  Country: None (occurrence: None)
  Receive Date: 20091231
  Receipt Date: 20091221
  Transmission Date: 20100525
  Serious: Yes (Other)
  Sender: FDA-Public Use
  Company Number: PHEH2009US09688

PATIENT
  Age: 71 Year
  Sex: Female
  Weight: 50 kg

DRUGS (3)
  1. AFINITOR [Suspect]
     Indication: CARCINOID SYNDROME
     Dosage: 10 MG, QD
     Route: 048
  2. SANDOSTATIN LAR [Concomitant]
     Indication: CARCINOID SYNDROME
     Dosage: 30 MG, TIW
     Route: 030
  3. HORMONES [Concomitant]

REACTIONS (3)
  - LIP SWELLING [None]
  - OEDEMA MOUTH [None]
  - TONGUE OEDEMA [None]
